FAERS Safety Report 18976564 (Version 3)
Quarter: 2022Q2

REPORT INFORMATION
  Report Type: Report from Study
  Country: ES (occurrence: ES)
  Receive Date: 20210306
  Receipt Date: 20220415
  Transmission Date: 20220720
  Serious: Yes (Hospitalization)
  Sender: FDA-Public Use
  Company Number: ES-AMGEN-ESPCT2021023012

PATIENT
  Age: 84 Year
  Sex: Male
  Weight: 67 kg

DRUGS (7)
  1. CARFILZOMIB [Suspect]
     Active Substance: CARFILZOMIB
     Indication: Plasma cell myeloma
     Dosage: 45.03 MILLIGRAM, PER CHEMO REGIM
     Route: 042
     Dates: start: 20180305
  2. DEXAMETHASONE [Concomitant]
     Active Substance: DEXAMETHASONE
     Indication: Plasma cell myeloma
     Dosage: 08-20 MILLIGRAM
     Dates: start: 20180501, end: 20210204
  3. ASCORBIC ACID\POTASSIUM BICARBONATE [Concomitant]
     Active Substance: ASCORBIC ACID\POTASSIUM BICARBONATE
     Dosage: UNK
     Dates: start: 20191014
  4. SODIUM CHLORIDE [Concomitant]
     Active Substance: SODIUM CHLORIDE
     Dosage: 50-500 MILLILITER
     Route: 042
     Dates: start: 20180306
  5. OMEPRAZOLE [Concomitant]
     Active Substance: OMEPRAZOLE
     Dosage: 20 MILLIGRAM
     Route: 048
     Dates: start: 20180305
  6. METHYLPREDNISOLONE [Concomitant]
     Active Substance: METHYLPREDNISOLONE
     Dosage: 20 MILLIGRAM
     Route: 048
     Dates: start: 20180307
  7. ACYCLOVIR [Concomitant]
     Active Substance: ACYCLOVIR
     Dosage: 400 MILLIGRAM
     Route: 048
     Dates: start: 20180305

REACTIONS (1)
  - Stress cardiomyopathy [Not Recovered/Not Resolved]

NARRATIVE: CASE EVENT DATE: 20210210
